FAERS Safety Report 13368147 (Version 1)
Quarter: 2017Q1

REPORT INFORMATION
  Report Type: Spontaneous
  Country: FR (occurrence: FR)
  Receive Date: 20170324
  Receipt Date: 20170324
  Transmission Date: 20170429
  Serious: Yes (Death, Life-Threatening, Other)
  Sender: FDA-Public Use
  Company Number: FR-ACCORD-043507

PATIENT
  Age: 11 Year
  Sex: Female

DRUGS (4)
  1. METHOTREXATE. [Suspect]
     Active Substance: METHOTREXATE
     Indication: MORPHOEA
     Route: 058
     Dates: start: 2012
  2. ILOPROST/ILOPROST TROMETAMINE/ILOPROST TROMETAMOL [Suspect]
     Active Substance: ILOPROST TROMETHAMINE
     Indication: MORPHOEA
  3. CYCLOPHOSPHAMIDE/CYCLOPHOSPHAMIDE MONOHYDRATE [Suspect]
     Active Substance: CYCLOPHOSPHAMIDE
     Indication: MORPHOEA
     Dates: start: 201209, end: 201302
  4. PREDNISONE. [Suspect]
     Active Substance: PREDNISONE
     Indication: MORPHOEA
     Route: 048
     Dates: start: 2012

REACTIONS (6)
  - Treatment failure [Unknown]
  - Off label use [Unknown]
  - Disease progression [Fatal]
  - Amputation [None]
  - Sepsis [None]
  - Cachexia [None]
